FAERS Safety Report 5366134-2 (Version None)
Quarter: 2007Q2

REPORT INFORMATION
  Report Type: 
  Country: None (occurrence: None)
  Receive Date: 20070530
  Receipt Date: 20070116
  Transmission Date: 20071010
  Serious: No
  Sender: FDA-Public Use
  Company Number: 2005PV001606

PATIENT
  Age: 65 Year
  Sex: Female
  Weight: 117.028 kg

DRUGS (6)
  1. BYETTA [Suspect]
     Indication: DIABETES MELLITUS NON-INSULIN-DEPENDENT
     Dosage: 10 MCG;BID;SC   5 MCG;BID;SC   10 MCG;BID;SC   5 MCG;BID;SC
     Route: 058
     Dates: start: 20050801, end: 20050101
  2. BYETTA [Suspect]
     Indication: DIABETES MELLITUS NON-INSULIN-DEPENDENT
     Dosage: 10 MCG;BID;SC   5 MCG;BID;SC   10 MCG;BID;SC   5 MCG;BID;SC
     Route: 058
     Dates: start: 20050724, end: 20050824
  3. BYETTA [Suspect]
     Indication: DIABETES MELLITUS NON-INSULIN-DEPENDENT
     Dosage: 10 MCG;BID;SC   5 MCG;BID;SC   10 MCG;BID;SC   5 MCG;BID;SC
     Route: 058
     Dates: start: 20050101
  4. BYETTA [Suspect]
     Indication: DIABETES MELLITUS NON-INSULIN-DEPENDENT
     Dosage: 10 MCG;BID;SC   5 MCG;BID;SC   10 MCG;BID;SC   5 MCG;BID;SC
     Route: 058
     Dates: start: 20050825
  5. BYETTA [Suspect]
  6. AVANDAMET [Concomitant]

REACTIONS (10)
  - ABASIA [None]
  - ASTHENIA [None]
  - BLOOD GLUCOSE DECREASED [None]
  - DIARRHOEA [None]
  - DISTURBANCE IN ATTENTION [None]
  - EARLY SATIETY [None]
  - HEADACHE [None]
  - NAUSEA [None]
  - PAINFUL RESPIRATION [None]
  - WEIGHT DECREASED [None]
